FAERS Safety Report 7788010-8 (Version None)
Quarter: 2011Q3

REPORT INFORMATION
  Report Type: 
  Country: None (occurrence: None)
  Receive Date: 20110927
  Receipt Date: 20110908
  Transmission Date: 20111222
  Serious: Yes (Hospitalization, Other)
  Sender: FDA-Public Use
  Company Number: JPI-P-016997

PATIENT
  Age: 46 Year
  Sex: Female

DRUGS (2)
  1. XYREM [Suspect]
     Indication: NARCOLEPSY
     Dosage: 4.5; 6  GM (2.25; 3 GM, 2 IN 1 D), ORAL
     Route: 048
     Dates: start: 20100902
  2. XYREM [Suspect]
     Indication: NARCOLEPSY
     Dosage: 4.5; 6  GM (2.25; 3 GM, 2 IN 1 D), ORAL
     Route: 048
     Dates: start: 20110815

REACTIONS (1)
  - DEHYDRATION [None]
